FAERS Safety Report 8782059 (Version 1)
Quarter: 2012Q4

REPORT INFORMATION
  Report Type: 
  Country: US (occurrence: US)
  Receive Date: 20120913
  Receipt Date: 20120913
  Transmission Date: 20130627
  Serious: No
  Sender: FDA-Public Use
  Company Number: US-ASTRAZENECA-2012SE64511

PATIENT
  Sex: Female

DRUGS (1)
  1. SYMBICORT PMDI [Suspect]
     Route: 055

REACTIONS (10)
  - Wheezing [Unknown]
  - Aphagia [Unknown]
  - Asthenia [Unknown]
  - Blood cholesterol increased [Unknown]
  - Myalgia [Unknown]
  - Influenza [Unknown]
  - Nasopharyngitis [Unknown]
  - Cough [Unknown]
  - Hypertension [Unknown]
  - Drug dose omission [Unknown]
